FAERS Safety Report 11400796 (Version 1)
Quarter: 2015Q3

REPORT INFORMATION
  Report Type: Spontaneous
  Country: US (occurrence: US)
  Receive Date: 20150820
  Receipt Date: 20150820
  Transmission Date: 20151125
  Serious: No
  Sender: FDA-Public Use
  Company Number: US-ACTELION PHARMACEUTICALS US, INC.-A-NJ2015-122703

PATIENT
  Age: 30 Year
  Sex: Female

DRUGS (1)
  1. VELETRI [Suspect]
     Active Substance: EPOPROSTENOL
     Indication: PULMONARY ARTERIAL HYPERTENSION
     Dosage: 40 NG/KG, UNK
     Route: 042
     Dates: start: 20110107

REACTIONS (5)
  - Device infusion issue [Recovered/Resolved]
  - Crying [Recovered/Resolved]
  - Device alarm issue [Recovered/Resolved]
  - Pallor [Recovered/Resolved]
  - Dizziness [Recovered/Resolved]

NARRATIVE: CASE EVENT DATE: 201507
